FAERS Safety Report 9188012 (Version 2)
Quarter: 2013Q2

REPORT INFORMATION
  Report Type: Spontaneous
  Country: US (occurrence: US)
  Receive Date: 20130325
  Receipt Date: 20130627
  Transmission Date: 20140414
  Serious: Yes (Death, Life-Threatening, Disabling)
  Sender: FDA-Public Use
  Company Number: US-GLAXOSMITHKLINE-A1015977A

PATIENT
  Age: 65 Year
  Sex: Female

DRUGS (3)
  1. ARIXTRA [Suspect]
     Indication: PULMONARY EMBOLISM
     Dosage: 7.5MG PER DAY
     Route: 058
     Dates: start: 20120830, end: 20121130
  2. CHEMOTHERAPY [Concomitant]
  3. UNKNOWN [Concomitant]

REACTIONS (3)
  - Malignant neoplasm progression [Unknown]
  - Ovarian cancer [Fatal]
  - Hospice care [Unknown]
